FAERS Safety Report 9087080 (Version 1)
Quarter: 2013Q1

REPORT INFORMATION
  Report Type: Report from Study
  Country: US (occurrence: US)
  Receive Date: 20130130
  Receipt Date: 20130130
  Transmission Date: 20140127
  Serious: No
  Sender: FDA-Public Use
  Company Number: US-ABBOTT-12P-163-0980882-00

PATIENT
  Age: 63 Year
  Sex: Female

DRUGS (10)
  1. HUMIRA [Suspect]
     Indication: PSORIASIS
     Dates: start: 20120809
  2. SPIRIVA [Concomitant]
     Indication: CHRONIC OBSTRUCTIVE PULMONARY DISEASE
  3. SYMBICORT [Concomitant]
     Indication: CHRONIC OBSTRUCTIVE PULMONARY DISEASE
  4. XOPENEX [Concomitant]
     Indication: CHRONIC OBSTRUCTIVE PULMONARY DISEASE
     Route: 055
  5. NASONEX [Concomitant]
     Indication: HYPERSENSITIVITY
     Dosage: IN EACH NOSTRIL DAILY
  6. VITAMIN D [Concomitant]
     Indication: PRODUCT USED FOR UNKNOWN INDICATION
     Dosage: DAILY
  7. ZANTAC [Concomitant]
     Indication: GASTROOESOPHAGEAL REFLUX DISEASE
     Dosage: TWO TIMES DAILY
  8. CILOSTAZOL [Concomitant]
     Indication: BLOOD CHOLESTEROL
     Dosage: TWO TIMES DAILY
  9. CITALOPRAM [Concomitant]
     Indication: NERVOUSNESS
     Dosage: 1/2 PILL TWO TIMES DAILY
  10. LORATADINE [Concomitant]
     Indication: HYPERSENSITIVITY

REACTIONS (1)
  - Headache [Not Recovered/Not Resolved]
